FAERS Safety Report 6614317-3 (Version None)
Quarter: 2010Q1

REPORT INFORMATION
  Report Type: 
  Country: None (occurrence: None)
  Receive Date: 20100304
  Receipt Date: 20100222
  Transmission Date: 20100710
  Serious: Yes (Death)
  Sender: FDA-Public Use
  Company Number: ZA-GENENTECH-297612

PATIENT
  Sex: Male
  Weight: 85 kg

DRUGS (4)
  1. MABTHERA [Suspect]
     Indication: B-CELL LYMPHOMA
     Dosage: UNK
     Route: 065
  2. MABTHERA [Suspect]
     Dosage: UNK
     Route: 065
  3. FLUDARA [Concomitant]
     Indication: B-CELL LYMPHOMA
     Dosage: UNK
     Dates: start: 20081124
  4. CYCLOPHOSPHAMIDE [Concomitant]
     Indication: B-CELL LYMPHOMA
     Dosage: UNK

REACTIONS (3)
  - BACTERIAL INFECTION [None]
  - NEUTROPENIA [None]
  - SEPSIS [None]
